FAERS Safety Report 19834634 (Version 1)
Quarter: 2021Q3

REPORT INFORMATION
  Report Type: Other
  Country: US (occurrence: US)
  Receive Date: 20210915
  Receipt Date: 20210915
  Transmission Date: 20211014
  Serious: No
  Sender: FDA-Public Use
  Company Number: US-LEADIANT BIOSCIENCES INC-2020STPI000345

PATIENT
  Sex: Male

DRUGS (10)
  1. OMEGA?3 [DOCOSAHEXAENOIC ACID;EICOSAPENTAENOIC ACID] [Concomitant]
     Active Substance: DOCONEXENT\ICOSAPENT
  2. VITAMIN E [Concomitant]
     Active Substance: .ALPHA.-TOCOPHEROL
  3. MATULANE [Suspect]
     Active Substance: PROCARBAZINE HYDROCHLORIDE
     Indication: BRAIN NEOPLASM MALIGNANT
     Dosage: 150 MG QD
     Route: 048
     Dates: start: 20200406
  4. CANNABIDIOL [Concomitant]
     Active Substance: CANNABIDIOL
  5. DHEA [Concomitant]
     Active Substance: PRASTERONE
  6. KEPPRA [Concomitant]
     Active Substance: LEVETIRACETAM
  7. VALTREX [Concomitant]
     Active Substance: VALACYCLOVIR HYDROCHLORIDE
  8. GLEOSTINE [Concomitant]
     Active Substance: LOMUSTINE
  9. VINCRISTINE [Concomitant]
     Active Substance: VINCRISTINE
  10. VITAMIN C [Concomitant]
     Active Substance: ASCORBIC ACID

REACTIONS (1)
  - Urticaria [Not Recovered/Not Resolved]
